FAERS Safety Report 12599939 (Version 3)
Quarter: 2016Q4

REPORT INFORMATION
  Report Type: Report from Study
  Country: US (occurrence: US)
  Receive Date: 20160727
  Receipt Date: 20161031
  Transmission Date: 20170207
  Serious: Yes (Other)
  Sender: FDA-Public Use
  Company Number: US-PFIZER INC-2016356717

PATIENT

DRUGS (3)
  1. ACETAMINOPHEN. [Suspect]
     Active Substance: ACETAMINOPHEN
     Dosage: UNK
     Route: 048
  2. METHOTREXATE SODIUM. [Suspect]
     Active Substance: METHOTREXATE SODIUM
     Dosage: UNK
     Route: 048
  3. VALPROATE [Suspect]
     Active Substance: VALPROIC ACID
     Dosage: UNK
     Route: 048

REACTIONS (3)
  - Intentional product misuse [Unknown]
  - Suicide attempt [Unknown]
  - Hepatotoxicity [Unknown]
